FAERS Safety Report 4350465-9 (Version None)
Quarter: 2004Q2

REPORT INFORMATION
  Report Type: 
  Country: None (occurrence: None)
  Receive Date: 20040430
  Receipt Date: 20040413
  Transmission Date: 20050107
  Serious: Yes (Hospitalization)
  Sender: FDA-Public Use
  Company Number: PHRM2004FR01518

PATIENT
  Age: 56 Year
  Sex: Female

DRUGS (7)
  1. GLEEVEC [Suspect]
     Indication: CHRONIC MYELOID LEUKAEMIA
     Dosage: 3 DF, DAILY
     Route: 048
     Dates: start: 20011001
  2. ROFERON-A [Suspect]
     Indication: CHRONIC MYELOID LEUKAEMIA
     Dates: start: 19990101, end: 19990501
  3. ROFERON-A [Suspect]
     Dates: start: 19990924, end: 19991114
  4. ROFERON-A [Suspect]
     Dates: start: 20000101, end: 20010101
  5. HYDREA [Suspect]
     Dates: start: 19990501, end: 19990924
  6. HYDREA [Suspect]
     Dates: start: 19991114, end: 20000101
  7. HYDREA [Suspect]
     Dates: start: 20010101, end: 20010901

REACTIONS (7)
  - APPENDICEAL MUCOCOELE [None]
  - BORDERLINE OVARIAN TUMOUR [None]
  - CONSTIPATION [None]
  - OOPHORECTOMY BILATERAL [None]
  - OVARIAN ADENOMA [None]
  - OVARIAN NEOPLASM [None]
  - PSEUDOMYXOMA PERITONEI [None]
